FAERS Safety Report 12868763 (Version 2)
Quarter: 2017Q1

REPORT INFORMATION
  Report Type: Spontaneous
  Country: JP (occurrence: JP)
  Receive Date: 20161021
  Receipt Date: 20170324
  Transmission Date: 20170428
  Serious: Yes (Other)
  Sender: FDA-Public Use
  Company Number: JP-APOTEX-2016AP013215

PATIENT
  Age: 85 Year
  Sex: Female

DRUGS (1)
  1. PAXIL CR [Suspect]
     Active Substance: PAROXETINE HYDROCHLORIDE
     Indication: PRODUCT USED FOR UNKNOWN INDICATION
     Dosage: 12.5 MG, 1D
     Route: 048

REACTIONS (3)
  - Mydriasis [Recovered/Resolved]
  - Hypoaesthesia [Recovered/Resolved]
  - Depressed level of consciousness [Recovered/Resolved]
